FAERS Safety Report 8187197-5 (Version None)
Quarter: 2012Q1

REPORT INFORMATION
  Report Type: 
  Country: None (occurrence: None)
  Receive Date: 20120306
  Receipt Date: 20120229
  Transmission Date: 20120608
  Serious: Yes (Other)
  Sender: FDA-Public Use
  Company Number: US-PFIZER INC-2012054463

PATIENT
  Sex: Female
  Weight: 113 kg

DRUGS (1)
  1. LYRICA [Suspect]
     Indication: FIBROMYALGIA
     Dosage: 75MG ORAL CAPSULE ONE IN THE MORNING AND THREE AT NIGHT
     Route: 048
     Dates: start: 20090101

REACTIONS (2)
  - AMYOTROPHIC LATERAL SCLEROSIS [None]
  - BLOOD TEST ABNORMAL [None]
